FAERS Safety Report 6257090-3 (Version None)
Quarter: 2009Q3

REPORT INFORMATION
  Report Type: 
  Country: None (occurrence: None)
  Receive Date: 20090706
  Receipt Date: 20090624
  Transmission Date: 20100115
  Serious: Yes (Hospitalization)
  Sender: FDA-Public Use
  Company Number: B0580332A

PATIENT
  Sex: Male
  Weight: 85 kg

DRUGS (11)
  1. AUGMENTIN '125' [Suspect]
     Indication: DRUG USE FOR UNKNOWN INDICATION
     Dosage: 1G THREE TIMES PER DAY
     Route: 042
     Dates: start: 20090116, end: 20090206
  2. CLAMOXYL IV [Suspect]
     Indication: DRUG USE FOR UNKNOWN INDICATION
     Dosage: 1G THREE TIMES PER DAY
     Route: 042
     Dates: start: 20090116, end: 20090202
  3. ESIDRIX [Concomitant]
     Route: 048
     Dates: start: 20090203
  4. LASIX [Concomitant]
     Route: 065
  5. TAHOR [Concomitant]
     Route: 065
  6. LYRICA [Concomitant]
     Route: 065
  7. CLONAZEPAM [Concomitant]
     Route: 065
  8. ACUPAN [Concomitant]
     Route: 065
  9. DAFALGAN [Concomitant]
     Route: 065
  10. CORTANCYL [Concomitant]
     Route: 065
  11. INIPOMP [Concomitant]
     Route: 065

REACTIONS (7)
  - ACUTE FEBRILE NEUTROPHILIC DERMATOSIS [None]
  - AGRANULOCYTOSIS [None]
  - BONE MARROW FAILURE [None]
  - DERMATITIS BULLOUS [None]
  - FEBRILE NEUTROPENIA [None]
  - GRANULOCYTES MATURATION ARREST [None]
  - HISTIOCYTOSIS HAEMATOPHAGIC [None]
